FAERS Safety Report 7283568-X (Version None)
Quarter: 2011Q1

REPORT INFORMATION
  Report Type: 
  Country: None (occurrence: None)
  Receive Date: 20110209
  Receipt Date: 20110201
  Transmission Date: 20110831
  Serious: Yes (Hospitalization)
  Sender: FDA-Public Use
  Company Number: A0788262A

PATIENT
  Age: 63 Year
  Sex: Male
  Weight: 92.7 kg

DRUGS (19)
  1. DIOVAN HCT [Concomitant]
  2. NEURONTIN [Concomitant]
  3. ZETIA [Concomitant]
  4. AVANDIA [Suspect]
     Indication: DIABETES MELLITUS
     Dosage: 4MG TWICE PER DAY
     Route: 048
     Dates: start: 20010730, end: 20070514
  5. LASIX [Concomitant]
  6. IMDUR [Concomitant]
  7. COMBIVENT [Concomitant]
  8. EPOGEN [Concomitant]
  9. PROCRIT [Concomitant]
  10. INSULIN [Concomitant]
  11. NEXIUM [Concomitant]
  12. LIPITOR [Concomitant]
  13. WELLBUTRIN [Concomitant]
  14. ROCALTROL [Concomitant]
  15. KAYEXALATE [Concomitant]
  16. NORVASC [Concomitant]
  17. VICODIN [Concomitant]
  18. RENAGEL [Concomitant]
  19. PHOSLO [Concomitant]

REACTIONS (3)
  - CARDIAC FAILURE CONGESTIVE [None]
  - MYOCARDIAL INFARCTION [None]
  - ACUTE CORONARY SYNDROME [None]
